FAERS Safety Report 9165574 (Version 1)
Quarter: 2013Q1

REPORT INFORMATION
  Report Type: Spontaneous
  Country: ES (occurrence: ES)
  Receive Date: 20130315
  Receipt Date: 20130315
  Transmission Date: 20140127
  Serious: Yes (Hospitalization)
  Sender: FDA-Public Use
  Company Number: ES-SANOFI-AVENTIS-2013SA023623

PATIENT
  Age: 78 Year
  Sex: Male

DRUGS (5)
  1. CLEXANE [Suspect]
     Indication: THROMBOSIS PROPHYLAXIS
     Dosage: 40MG DIA
     Route: 058
     Dates: start: 20120904, end: 20120910
  2. XENETIX [Suspect]
     Indication: COMPUTERISED TOMOGRAM ABDOMEN
     Route: 042
     Dates: start: 20120904, end: 20120904
  3. TAZOCEL [Suspect]
     Indication: PRODUCT USED FOR UNKNOWN INDICATION
     Dosage: 1AMP/8H IV
     Route: 042
     Dates: start: 20120904, end: 20120910
  4. ADIRO [Concomitant]
     Dosage: 0-1-0
     Route: 048
     Dates: start: 2009
  5. INSULIN DETEMIR [Concomitant]
     Dosage: 6-0-0
     Route: 058
     Dates: start: 201203

REACTIONS (1)
  - Renal failure acute [Not Recovered/Not Resolved]
